FAERS Safety Report 7528183-5 (Version None)
Quarter: 2011Q2

REPORT INFORMATION
  Report Type: 
  Country: None (occurrence: None)
  Receive Date: 20110607
  Receipt Date: 20101227
  Transmission Date: 20111010
  Serious: No
  Sender: FDA-Public Use
  Company Number: US-ASTRAZENECA-2010SE51131

PATIENT
  Age: 49 Year
  Sex: Female
  Weight: 108.9 kg

DRUGS (6)
  1. PREMARIN [Concomitant]
  2. FLUOXETINE HCL [Concomitant]
  3. GLIPIZIDE [Concomitant]
  4. LISINOPRIL [Concomitant]
  5. OMEPRAZOLE [Suspect]
     Indication: GASTROOESOPHAGEAL REFLUX DISEASE
     Route: 048
     Dates: start: 19900101
  6. LEVOTHYROXINE SODIUM [Concomitant]

REACTIONS (3)
  - GASTRIC POLYPS [None]
  - DYSPEPSIA [None]
  - ABDOMINAL PAIN UPPER [None]
